FAERS Safety Report 7749045-4 (Version None)
Quarter: 2011Q3

REPORT INFORMATION
  Report Type: 
  Country: None (occurrence: None)
  Receive Date: 20110909
  Receipt Date: 20110901
  Transmission Date: 20111222
  Serious: Yes (Hospitalization)
  Sender: FDA-Public Use
  Company Number: WAES 1108USA02063

PATIENT
  Age: 51 Year
  Sex: Male

DRUGS (11)
  1. HYDROCHLOROTHIAZIDE [Concomitant]
  2. FERROUS SULFATE TAB [Concomitant]
  3. VITAMINS (UNSPECIFIED) [Concomitant]
  4. TAB RALTEGRAVIR POTASSIUM UNK [Suspect]
     Indication: HIV INFECTION
     Dosage: 400 MG/BID/PO
     Route: 048
     Dates: start: 20091215
  5. EMTRICITABINE AND TENOFOVIR DISOPROXIL FUMARATE [Suspect]
     Indication: HIV INFECTION
     Dosage: 500 MG/DAILY/PO
     Route: 048
     Dates: start: 20091215
  6. VIAGRA [Concomitant]
  7. NASONEX [Concomitant]
  8. ZOLOFT [Concomitant]
  9. NORVASC [Concomitant]
  10. IBUPROFEN [Concomitant]
  11. GLIPIZIDE [Suspect]
     Indication: DIABETES MELLITUS
     Dosage: UNK/DAILY/PO
     Route: 048

REACTIONS (3)
  - DEHYDRATION [None]
  - HYPERGLYCAEMIA [None]
  - DYSARTHRIA [None]
